FAERS Safety Report 5859818-0 (Version None)
Quarter: 2008Q3

REPORT INFORMATION
  Report Type: 
  Country: None (occurrence: None)
  Receive Date: 20080827
  Receipt Date: 20080821
  Transmission Date: 20090109
  Serious: Yes (Hospitalization, Other)
  Sender: FDA-Public Use
  Company Number: US-MERCK-0804USA04893

PATIENT
  Age: 71 Year
  Sex: Female

DRUGS (3)
  1. FOSAMAX [Suspect]
     Indication: OSTEOPOROSIS
     Route: 048
     Dates: start: 20040401, end: 20050801
  2. FOSAMAX PLUS D [Suspect]
     Indication: OSTEOPOROSIS
     Route: 048
     Dates: start: 20051014, end: 20060517
  3. ESTRADIOL [Concomitant]
     Route: 065
     Dates: start: 20020101, end: 20040101

REACTIONS (9)
  - ABSCESS [None]
  - DENTAL CARIES [None]
  - IMPLANT SITE INFECTION [None]
  - INFECTION [None]
  - ORAL INFECTION [None]
  - OSTEOMYELITIS [None]
  - OSTEONECROSIS [None]
  - PAINFUL RESPIRATION [None]
  - RESORPTION BONE INCREASED [None]
